FAERS Safety Report 15996837 (Version 1)
Quarter: 2019Q1

REPORT INFORMATION
  Report Type: Spontaneous
  Country: US (occurrence: US)
  Receive Date: 20190222
  Receipt Date: 20190222
  Transmission Date: 20190418
  Serious: No
  Sender: FDA-Public Use
  Company Number: None

PATIENT
  Age: 63 Year
  Sex: Female
  Weight: 69.75 kg

DRUGS (4)
  1. IBUPROFEN. [Concomitant]
     Active Substance: IBUPROFEN
  2. FLOUROUROCIL [Concomitant]
  3. VALACYCLOVIR 1 GM [Suspect]
     Active Substance: VALACYCLOVIR HYDROCHLORIDE
     Indication: HERPES SIMPLEX
     Dosage: ?          QUANTITY:1 TABLET(S);?
     Route: 048
     Dates: start: 20190207, end: 20190220
  4. CEPHALEXIN. [Concomitant]
     Active Substance: CEPHALEXIN

REACTIONS (4)
  - Chills [None]
  - Headache [None]
  - Abdominal rigidity [None]
  - Back pain [None]

NARRATIVE: CASE EVENT DATE: 20190220
